FAERS Safety Report 12497548 (Version 3)
Quarter: 2016Q3

REPORT INFORMATION
  Report Type: Report from Study
  Country: BR (occurrence: BR)
  Receive Date: 20160625
  Receipt Date: 20160831
  Transmission Date: 20161109
  Serious: Yes (Death, Hospitalization, Other)
  Sender: FDA-Public Use
  Company Number: PHHY2016BR086272

PATIENT
  Age: 54 Year
  Sex: Male
  Weight: 59 kg

DRUGS (1)
  1. GILENYA [Suspect]
     Active Substance: FINGOLIMOD HYDROCHLORIDE
     Indication: MULTIPLE SCLEROSIS
     Dosage: 0.5 MG, QD
     Route: 048
     Dates: start: 20160427

REACTIONS (8)
  - Fall [Unknown]
  - Pain [Unknown]
  - Decreased appetite [Unknown]
  - Pulmonary embolism [Fatal]
  - Syncope [Unknown]
  - Vomiting [Unknown]
  - Femur fracture [Unknown]
  - Myelodysplastic syndrome [Unknown]

NARRATIVE: CASE EVENT DATE: 201605
